FAERS Safety Report 14326823 (Version 1)
Quarter: 2017Q4

REPORT INFORMATION
  Report Type: Spontaneous
  Country: US (occurrence: US)
  Receive Date: 20171226
  Receipt Date: 20171226
  Transmission Date: 20180321
  Serious: Yes (Disabling)
  Sender: FDA-Public Use
  Company Number: None

PATIENT
  Age: 31 Year
  Sex: Female
  Weight: 108.86 kg

DRUGS (1)
  1. LINEZOLID INJECTION 600MG/300ML FLEXIBLE BAGS [Suspect]
     Active Substance: LINEZOLID
     Indication: DIABETES MELLITUS
     Dosage: ?          QUANTITY:5 INJECTION(S);?
     Route: 058

REACTIONS (1)
  - Skin infection [None]

NARRATIVE: CASE EVENT DATE: 20160214
